FAERS Safety Report 10363347 (Version 1)
Quarter: 2014Q1

REPORT INFORMATION
  Report Type: Spontaneous
  Country: US (occurrence: None)
  Receive Date: 20140306
  Receipt Date: 20140306
  Transmission Date: 20141002
  Serious: Yes (Disabling)
  Sender: FDA-Public Use
  Company Number: 163-21880-13061713

PATIENT
  Age: 55 Year
  Sex: Female
  Weight: 67.13 kg

DRUGS (2)
  1. REVLIMID (LENALIDOMIDE) (CAPSULES) [Suspect]
     Indication: PLASMA CELL MYELOMA
     Dosage: 25 MG, 21 IN 21 D, PO
     Route: 048
     Dates: start: 201302
  2. DEXAMETHASONE (DEXAMETHASONE) [Concomitant]

REACTIONS (2)
  - Plasma cell myeloma [None]
  - Neutropenia [None]
